FAERS Safety Report 25785421 (Version 1)
Quarter: 2025Q3

REPORT INFORMATION
  Report Type: Report from Study
  Country: US (occurrence: US)
  Receive Date: 20250910
  Receipt Date: 20250910
  Transmission Date: 20251020
  Serious: Yes (Other)
  Sender: AVERITAS
  Company Number: US-GRUNENTHAL-2025-121725

PATIENT
  Sex: Male

DRUGS (1)
  1. QUTENZA [Suspect]
     Active Substance: CAPSAICIN
     Indication: Diabetic neuropathy
     Route: 061
     Dates: start: 20250724, end: 20250724

REACTIONS (2)
  - Angina pectoris [Unknown]
  - Pain [Not Recovered/Not Resolved]
